FAERS Safety Report 8858838 (Version 1)
Quarter: 2012Q4

REPORT INFORMATION
  Report Type: 
  Country: IL (occurrence: IL)
  Receive Date: 20121024
  Receipt Date: 20121024
  Transmission Date: 20130627
  Serious: Yes (Other)
  Sender: FDA-Public Use
  Company Number: IL-JNJFOC-20121008306

PATIENT

DRUGS (13)
  1. RISPERIDONE [Suspect]
     Indication: SCHIZOPHRENIA
     Dosage: 2-8 mg
     Route: 065
  2. LORAZEPAM [Concomitant]
     Route: 065
  3. NITRAZEPAM [Concomitant]
     Route: 065
  4. PARACETAMOL [Concomitant]
     Route: 065
  5. ZOLPIDEM [Concomitant]
     Route: 065
  6. HALOPERIDOL [Concomitant]
     Route: 065
  7. BENZODIAZEPINES NOS [Concomitant]
     Route: 065
  8. OLANZAPINE [Concomitant]
     Route: 065
  9. PROMETHAZINE [Concomitant]
     Route: 065
  10. LACTULOSE [Concomitant]
     Route: 065
  11. TRIFLUOPERAZINE [Concomitant]
     Route: 065
  12. GALENIC /IBUPROFEN/PARACETAMOL/ [Concomitant]
     Route: 065
  13. TRIHEXYPHENIDYL [Concomitant]
     Route: 065

REACTIONS (23)
  - Parkinsonism [Unknown]
  - Adverse event [Unknown]
  - Electrocardiogram abnormal [Unknown]
  - Electrocardiogram QT prolonged [Unknown]
  - Heart rate increased [Unknown]
  - Akathisia [Unknown]
  - Bradykinesia [Unknown]
  - Oromandibular dystonia [Unknown]
  - Muscle rigidity [Unknown]
  - Blood pressure increased [Unknown]
  - Blood prolactin increased [Unknown]
  - Drug ineffective [Unknown]
  - Constipation [Unknown]
  - Pyrexia [Unknown]
  - Weight increased [Unknown]
  - Headache [Unknown]
  - Tremor [Unknown]
  - Agitation [Unknown]
  - Insomnia [Unknown]
  - Restlessness [Unknown]
  - Adverse event [Unknown]
  - Extrapyramidal disorder [Unknown]
  - Nervous system disorder [Unknown]
